FAERS Safety Report 25631525 (Version 2)
Quarter: 2025Q3

REPORT INFORMATION
  Report Type: Spontaneous
  Country: US (occurrence: US)
  Receive Date: 20250801
  Receipt Date: 20250813
  Transmission Date: 20251020
  Serious: Yes (Other)
  Sender: ROCHE
  Company Number: US-ROCHE-10000349084

PATIENT
  Age: 41 Year
  Sex: Female
  Weight: 67.13 kg

DRUGS (7)
  1. XOLAIR PFS [Suspect]
     Active Substance: OMALIZUMAB
     Indication: Idiopathic urticaria
     Dosage: STRENGTH: 150 MG/ML
     Route: 058
     Dates: start: 20250515
  2. XOLAIR PFS [Suspect]
     Active Substance: OMALIZUMAB
     Route: 058
     Dates: start: 20250525
  3. XOLAIR PFS [Suspect]
     Active Substance: OMALIZUMAB
     Route: 058
     Dates: start: 20250620
  4. XOLAIR PFS [Suspect]
     Active Substance: OMALIZUMAB
     Dosage: STRENGTH: 150 MG/ML
     Route: 058
     Dates: start: 202506
  5. ALPRAZOLAM [Concomitant]
     Active Substance: ALPRAZOLAM
  6. DESLORATADINE [Concomitant]
     Active Substance: DESLORATADINE
     Indication: Urticaria
  7. EPIPEN [Concomitant]
     Active Substance: EPINEPHRINE

REACTIONS (4)
  - Palpitations [Unknown]
  - Insomnia [Unknown]
  - Anaphylactic reaction [Unknown]
  - Throat clearing [Unknown]

NARRATIVE: CASE EVENT DATE: 20250721
